FAERS Safety Report 19682229 (Version 9)
Quarter: 2024Q3

REPORT INFORMATION
  Report Type: Report from Study
  Country: US (occurrence: US)
  Receive Date: 20210810
  Receipt Date: 20240806
  Transmission Date: 20241016
  Serious: Yes (Other)
  Sender: TAKEDA
  Company Number: US-TAKEDA-US202012999

PATIENT
  Age: 57 Year
  Sex: Female

DRUGS (4)
  1. CUVITRU [Suspect]
     Active Substance: HUMAN IMMUNOGLOBULIN G
     Indication: Primary immunodeficiency syndrome
     Dosage: 12 GRAM, MONTHLY
     Route: 065
  2. CUVITRU [Suspect]
     Active Substance: HUMAN IMMUNOGLOBULIN G
     Indication: Immunodeficiency common variable
     Dosage: 12 GRAM, 1/WEEK
     Route: 065
  3. CUVITRU [Suspect]
     Active Substance: HUMAN IMMUNOGLOBULIN G
     Dosage: UNK
     Route: 058
  4. COVID-19 VACCINE NOS [Suspect]
     Active Substance: COVID-19 VACCINE
     Indication: Product used for unknown indication
     Dosage: UNK
     Route: 065

REACTIONS (20)
  - Renal failure [Unknown]
  - Staphylococcal infection [Unknown]
  - Epidermolysis bullosa [Unknown]
  - Haemorrhage [Recovered/Resolved]
  - Gastric ulcer [Unknown]
  - Rectal haemorrhage [Unknown]
  - Complication associated with device [Unknown]
  - Blood pressure increased [Unknown]
  - Fungal infection [Unknown]
  - Illness [Unknown]
  - Drug hypersensitivity [Unknown]
  - Sinusitis [Unknown]
  - Sinus headache [Unknown]
  - Vaginal haemorrhage [Unknown]
  - Herpes zoster [Unknown]
  - Decreased immune responsiveness [Unknown]
  - COVID-19 [Unknown]
  - Large intestine polyp [Unknown]
  - Pain in extremity [Unknown]
  - Fatigue [Unknown]

NARRATIVE: CASE EVENT DATE: 20211026
